FAERS Safety Report 6679428-5 (Version None)
Quarter: 2010Q2

REPORT INFORMATION
  Report Type: 
  Country: None (occurrence: None)
  Receive Date: 20100413
  Receipt Date: 20100406
  Transmission Date: 20101027
  Serious: Yes (Hospitalization)
  Sender: FDA-Public Use
  Company Number: PL-ROCHE-695451

PATIENT
  Sex: Female

DRUGS (2)
  1. BLINDED TOCILIZUMAB [Suspect]
     Indication: RHEUMATOID ARTHRITIS
     Dosage: FORM: INFUSION,  DOSE: BLINDED,  BLIND PHASE.
     Route: 042
     Dates: start: 20060727
  2. TOCILIZUMAB [Suspect]
     Indication: RHEUMATOID ARTHRITIS
     Dosage: FORML; INFUSION. DOES: (UNK) MG/KG.  OPEN PHASE. LAST DOSE PRIOR TO SAE: 31 MARCH 2010
     Route: 042
     Dates: start: 20080723

REACTIONS (1)
  - RENAL FAILURE ACUTE [None]
